FAERS Safety Report 20189581 (Version 1)
Quarter: 2021Q4

REPORT INFORMATION
  Report Type: Report from Study
  Country: CA (occurrence: CA)
  Receive Date: 20211215
  Receipt Date: 20211215
  Transmission Date: 20220303
  Serious: Yes (Hospitalization, Other)
  Sender: FDA-Public Use
  Company Number: CA-SHIRE-CA202020680

PATIENT
  Age: 2 Year
  Sex: Male

DRUGS (2)
  1. ANTI-INHIBITOR COAGULANT COMPLEX [Suspect]
     Active Substance: ANTI-INHIBITOR COAGULANT COMPLEX
     Indication: Factor VIII deficiency
     Dosage: 1000 INTERNATIONAL UNIT, QD
     Route: 065
     Dates: start: 20200612
  2. ANTI-INHIBITOR COAGULANT COMPLEX [Suspect]
     Active Substance: ANTI-INHIBITOR COAGULANT COMPLEX
     Dosage: 1000 INTERNATIONAL UNIT, EVERY 2 DAYS
     Route: 065
     Dates: start: 20210203, end: 20210203

REACTIONS (3)
  - Catheter site haemorrhage [Unknown]
  - Catheter site inflammation [Not Recovered/Not Resolved]
  - Keloid scar [Recovering/Resolving]

NARRATIVE: CASE EVENT DATE: 20200619
